FAERS Safety Report 14195336 (Version 1)
Quarter: 2017Q4

REPORT INFORMATION
  Report Type: Spontaneous
  Country: GB (occurrence: GB)
  Receive Date: 20171116
  Receipt Date: 20171116
  Transmission Date: 20180321
  Serious: Yes (Other)
  Sender: FDA-Public Use
  Company Number: GB-B. BRAUN MEDICAL INC.-2034314

PATIENT
  Age: 44 Year
  Sex: Male

DRUGS (18)
  1. METRONIDAZOLE. [Suspect]
     Active Substance: METRONIDAZOLE
     Dates: start: 20170908, end: 20170922
  2. AMITRIPTYLINE HYDROCHLORIDE. [Concomitant]
     Active Substance: AMITRIPTYLINE HYDROCHLORIDE
     Dates: start: 20170706, end: 20171008
  3. GLICLAZIDE [Concomitant]
     Active Substance: GLICLAZIDE
     Dates: start: 20170711
  4. PRAVASTATIN. [Concomitant]
     Active Substance: PRAVASTATIN
     Dates: start: 20170404
  5. FLUTICASONE. [Concomitant]
     Active Substance: FLUTICASONE
     Route: 055
     Dates: start: 20170404
  6. LANSOPRAZOLE. [Suspect]
     Active Substance: LANSOPRAZOLE
     Dates: start: 20170908
  7. PARACETAMOL [Concomitant]
     Active Substance: ACETAMINOPHEN
     Dates: start: 20170404
  8. BISMUTH. [Suspect]
     Active Substance: BISMUTH
     Dates: start: 20170908, end: 20170922
  9. SALBUTAMOL [Concomitant]
     Active Substance: ALBUTEROL
     Dates: start: 20170404
  10. TETRACYCLINE HYDROCHLORIDE. [Suspect]
     Active Substance: TETRACYCLINE HYDROCHLORIDE
     Dates: start: 20170922
  11. GYCEROL TRINITRATE [Concomitant]
     Route: 055
     Dates: start: 20170404
  12. SITAGLIPTIN [Concomitant]
     Active Substance: SITAGLIPTIN
     Dates: start: 20170706, end: 20170711
  13. ESOMEPRAZOLE [Concomitant]
     Active Substance: ESOMEPRAZOLE
     Dates: start: 20170404
  14. METFORMIN [Concomitant]
     Active Substance: METFORMIN HYDROCHLORIDE
     Dates: start: 20170404
  15. ACIDEX [Concomitant]
     Active Substance: CALCIUM CARBONATE\SODIUM ALGINATE\SODIUM BICARBONATE
     Dates: start: 20170404
  16. RAMIPRIL. [Concomitant]
     Active Substance: RAMIPRIL
     Dates: start: 20170404
  17. AMLODIPINE [Concomitant]
     Active Substance: AMLODIPINE BESYLATE
     Dates: start: 20170404
  18. LORATADINE. [Concomitant]
     Active Substance: LORATADINE
     Dates: start: 20170628, end: 20170728

REACTIONS (2)
  - Pharyngeal oedema [None]
  - Chest discomfort [None]
